FAERS Safety Report 11728330 (Version 2)
Quarter: 2016Q1

REPORT INFORMATION
  Report Type: Spontaneous
  Country: US (occurrence: US)
  Receive Date: 20151112
  Receipt Date: 20160113
  Transmission Date: 20160525
  Serious: No
  Sender: FDA-Public Use
  Company Number: US-PFIZER INC-2015386534

PATIENT
  Age: 6 Decade
  Sex: Female
  Weight: 75 kg

DRUGS (1)
  1. SERTRALINE HCL [Suspect]
     Active Substance: SERTRALINE HYDROCHLORIDE
     Indication: ANXIETY
     Dosage: 300MG TABLET A DAY
     Route: 048

REACTIONS (4)
  - Nervousness [Unknown]
  - Impatience [Unknown]
  - Irritability [Unknown]
  - Drug ineffective [Unknown]
